FAERS Safety Report 5693466-0 (Version None)
Quarter: 2008Q2

REPORT INFORMATION
  Report Type: 
  Country: None (occurrence: None)
  Receive Date: 20080402
  Receipt Date: 20080402
  Transmission Date: 20081010
  Serious: Yes (Other)
  Sender: FDA-Public Use
  Company Number: None

PATIENT
  Age: 43 Year
  Sex: Male
  Weight: 63.9572 kg

DRUGS (5)
  1. TENOFOVIR [Suspect]
     Indication: ACQUIRED IMMUNODEFICIENCY SYNDROME
     Dosage: 300MG PO ONCE Q DAY
     Route: 048
     Dates: start: 20060609, end: 20080220
  2. TRUVADA [Concomitant]
  3. SUSTIVA [Concomitant]
  4. EPZICOM [Concomitant]
  5. COMBIVIR [Concomitant]

REACTIONS (1)
  - BLOOD CREATININE INCREASED [None]
